FAERS Safety Report 9417268 (Version 1)
Quarter: 2013Q3

REPORT INFORMATION
  Report Type: Spontaneous
  Country: AU (occurrence: None)
  Receive Date: 20130719
  Receipt Date: 20130719
  Transmission Date: 20140515
  Serious: Yes (Life-Threatening, Other)
  Sender: FDA-Public Use
  Company Number: 2013000167

PATIENT
  Age: 69 Year
  Sex: Male

DRUGS (1)
  1. ACEON [Suspect]
     Indication: PRODUCT USED FOR UNKNOWN INDICATION
     Route: 048
     Dates: start: 20130306, end: 20130420

REACTIONS (7)
  - Cyanosis [None]
  - Dyspnoea [None]
  - Tremor [None]
  - Agitation [None]
  - Angioedema [None]
  - Speech disorder [None]
  - Swollen tongue [None]
